FAERS Safety Report 22688148 (Version 10)
Quarter: 2023Q4

REPORT INFORMATION
  Report Type: Report from Study
  Country: US (occurrence: US)
  Receive Date: 20230710
  Receipt Date: 20231020
  Transmission Date: 20240110
  Serious: No
  Sender: FDA-Public Use
  Company Number: US-002147023-NVSC2023US153153

PATIENT
  Age: 30 Year
  Sex: Female
  Weight: 77.551 kg

DRUGS (16)
  1. KESIMPTA [Suspect]
     Active Substance: OFATUMUMAB
     Indication: Multiple sclerosis
     Dosage: 20 MG (10.4 ML)
     Route: 058
     Dates: start: 20230405
  2. KESIMPTA [Suspect]
     Active Substance: OFATUMUMAB
     Dosage: 20 MG, QW
     Route: 058
     Dates: start: 20230608
  3. KESIMPTA [Suspect]
     Active Substance: OFATUMUMAB
     Dosage: 20 MG, QMO
     Route: 058
  4. KESIMPTA [Suspect]
     Active Substance: OFATUMUMAB
     Dosage: UNK
     Route: 058
     Dates: start: 20230607
  5. KESIMPTA [Suspect]
     Active Substance: OFATUMUMAB
     Dosage: 20 MG (0.4 ML), AT WEEKS 0,1, AND 2
     Route: 058
  6. KESIMPTA [Suspect]
     Active Substance: OFATUMUMAB
     Dosage: 20 MG
     Route: 058
     Dates: start: 20230524
  7. VIT B2 [Concomitant]
     Indication: Product used for unknown indication
     Dosage: UNK, QD
     Route: 065
  8. ACETAMINOPHEN [Concomitant]
     Active Substance: ACETAMINOPHEN
     Indication: Product used for unknown indication
     Dosage: 500 MG, Q6H
     Route: 048
  9. CYANOCOBALAMIN [Concomitant]
     Active Substance: CYANOCOBALAMIN
     Indication: Product used for unknown indication
     Dosage: 1000 UG, QD
     Route: 060
  10. KIRKLAND SIGNATURE ALLERCLEAR [Concomitant]
     Active Substance: LORATADINE
     Indication: Product used for unknown indication
     Dosage: AS NEEDED
     Route: 065
  11. CHOLECALCIFEROL [Concomitant]
     Active Substance: CHOLECALCIFEROL
     Indication: Product used for unknown indication
     Dosage: 50 UG (2000 UNITS)
     Route: 048
  12. TIZANIDINE [Concomitant]
     Active Substance: TIZANIDINE
     Indication: Product used for unknown indication
     Dosage: 4 MG, TID
     Route: 048
  13. SOLU-MEDROL [Concomitant]
     Active Substance: METHYLPREDNISOLONE SODIUM SUCCINATE
     Indication: Multiple sclerosis
     Dosage: 1000 MG, OVER 1.5-2 HOURS
     Route: 042
  14. SODIUM CHLORIDE [Concomitant]
     Active Substance: SODIUM CHLORIDE
     Indication: Product used for unknown indication
     Dosage: 1000 ML
     Route: 041
  15. MAXALT-MLT [Concomitant]
     Active Substance: RIZATRIPTAN BENZOATE
     Indication: Migraine
     Dosage: 10 MG, Q8H
     Route: 048
  16. CANNABIS SATIVA SUBSP. INDICA TOP [Concomitant]
     Active Substance: CANNABIS SATIVA SUBSP. INDICA TOP
     Indication: Product used for unknown indication
     Dosage: UNK
     Route: 065

REACTIONS (19)
  - Lower respiratory tract infection [Not Recovered/Not Resolved]
  - Concomitant disease aggravated [Recovered/Resolved]
  - Nausea [Unknown]
  - Injection site bruising [Unknown]
  - Fatigue [Not Recovered/Not Resolved]
  - Injection site pain [Unknown]
  - Accidental exposure to product [Recovered/Resolved]
  - Incorrect dose administered by device [Unknown]
  - Device malfunction [Unknown]
  - Nasopharyngitis [Unknown]
  - Cough [Unknown]
  - Oropharyngeal pain [Unknown]
  - Sinus headache [Unknown]
  - Respiratory tract congestion [Unknown]
  - Immune system disorder [Unknown]
  - Diarrhoea [Unknown]
  - Stomatitis [Unknown]
  - Contusion [Unknown]
  - Neuralgia [Unknown]

NARRATIVE: CASE EVENT DATE: 20230608
